FAERS Safety Report 7058152-3 (Version None)
Quarter: 2010Q4

REPORT INFORMATION
  Report Type: 
  Country: None (occurrence: None)
  Receive Date: 20101022
  Receipt Date: 20101020
  Transmission Date: 20110411
  Serious: No
  Sender: FDA-Public Use
  Company Number: US-B.I. PHARMACEUTICALS,INC./RIDGEFIELD-2006-BP-08946BP

PATIENT
  Age: 40 Year
  Sex: Male

DRUGS (2)
  1. MIRAPEX [Suspect]
     Indication: ESSENTIAL TREMOR
     Route: 048
     Dates: start: 20050601, end: 20080601
  2. ADVAIR DISKUS 100/50 [Concomitant]
     Indication: ASTHMA

REACTIONS (10)
  - COMPULSIVE SEXUAL BEHAVIOUR [None]
  - COMPULSIVE SHOPPING [None]
  - EMOTIONAL DISTRESS [None]
  - FATIGUE [None]
  - GAMBLING [None]
  - HYPERSEXUALITY [None]
  - JUDGEMENT IMPAIRED [None]
  - OBSESSIVE-COMPULSIVE DISORDER [None]
  - PAIN [None]
  - PICA [None]
